FAERS Safety Report 24834804 (Version 1)
Quarter: 2025Q1

REPORT INFORMATION
  Report Type: Spontaneous
  Country: US (occurrence: None)
  Receive Date: 20250110
  Receipt Date: 20250110
  Transmission Date: 20250409
  Serious: Yes (Hospitalization)
  Sender: FDA-CTU
  Company Number: None

PATIENT

DRUGS (1)
  1. HEMLIBRA [Suspect]
     Active Substance: EMICIZUMAB-KXWH

REACTIONS (6)
  - Rash erythematous [None]
  - Rash pruritic [None]
  - Skin exfoliation [None]
  - Vomiting [None]
  - Post procedural complication [None]
  - Therapy interrupted [None]
